FAERS Safety Report 8698319 (Version 3)
Quarter: 2012Q4

REPORT INFORMATION
  Report Type: 
  Country: DE (occurrence: DE)
  Receive Date: 20120802
  Receipt Date: 20121023
  Transmission Date: 20130627
  Serious: Yes (Other)
  Sender: FDA-Public Use
  Company Number: PHHY2012DE066214

PATIENT
  Age: 43 Year
  Sex: Male

DRUGS (3)
  1. LEPONEX [Suspect]
     Dosage: 100 mg
     Route: 048
  2. LEPONEX [Suspect]
     Dosage: 400-500 mg, QD
     Route: 048
  3. ATENOLOL ^RATIOPHARM^ [Concomitant]

REACTIONS (1)
  - Dental caries [Recovering/Resolving]
